FAERS Safety Report 8056157-7 (Version None)
Quarter: 2011Q4

REPORT INFORMATION
  Report Type: 
  Country: None (occurrence: None)
  Receive Date: 20111219
  Receipt Date: 20110712
  Transmission Date: 20120403
  Serious: Yes (Hospitalization)
  Sender: FDA-Public Use
  Company Number: WAES 1107USA01701

PATIENT
  Sex: Male

DRUGS (2)
  1. SIMVASTATIN [Concomitant]
  2. JANUVIA [Suspect]
     Indication: TYPE 2 DIABETES MELLITUS
     Dosage: UNK/UNK/PO
     Route: 048

REACTIONS (1)
  - RENAL FAILURE [None]
